FAERS Safety Report 13345054 (Version 1)
Quarter: 2017Q1

REPORT INFORMATION
  Report Type: Spontaneous
  Country: FR (occurrence: FR)
  Receive Date: 20170317
  Receipt Date: 20170317
  Transmission Date: 20170428
  Serious: Yes (Death, Hospitalization)
  Sender: FDA-Public Use
  Company Number: FR-ROCHE-1905884

PATIENT
  Age: 72 Year
  Sex: Male

DRUGS (12)
  1. EZETROL [Concomitant]
     Active Substance: EZETIMIBE
     Dosage: 10 MG
     Route: 065
  2. CERTICAN [Concomitant]
     Active Substance: EVEROLIMUS
  3. MABTHERA [Suspect]
     Active Substance: RITUXIMAB
     Indication: TRANSPLANT REJECTION
     Dosage: 4 CYCLES IN TOTAL
     Route: 042
     Dates: start: 20160203
  4. CELLCEPT [Suspect]
     Active Substance: MYCOPHENOLATE MOFETIL\MYCOPHENOLATE MOFETIL HYDROCHLORIDE
     Indication: HEART TRANSPLANT
     Route: 048
     Dates: start: 20110628, end: 20161130
  5. CALDINE (FRANCE) [Concomitant]
     Dosage: 2 MG
     Route: 065
  6. RAMIPRIL. [Concomitant]
     Active Substance: RAMIPRIL
  7. INEXIUM [Concomitant]
     Active Substance: ESOMEPRAZOLE
     Dosage: 40 MG
     Route: 065
  8. BACTRIM [Concomitant]
     Active Substance: SULFAMETHOXAZOLE\TRIMETHOPRIM
     Route: 065
  9. DIFFU K [Concomitant]
     Active Substance: POTASSIUM CHLORIDE
  10. ASPEGIC [Concomitant]
     Active Substance: ASPIRIN DL-LYSINE
  11. CORTANCYL [Suspect]
     Active Substance: PREDNISONE
     Indication: HEART TRANSPLANT
     Route: 048
     Dates: start: 20110628, end: 20160124
  12. NEORAL [Suspect]
     Active Substance: CYCLOSPORINE
     Indication: HEART TRANSPLANT
     Route: 048
     Dates: start: 20110630, end: 20161205

REACTIONS (3)
  - Off label use [Fatal]
  - Progressive multifocal leukoencephalopathy [Fatal]
  - Product use issue [Fatal]

NARRATIVE: CASE EVENT DATE: 20161119
